FAERS Safety Report 13461389 (Version 3)
Quarter: 2017Q2

REPORT INFORMATION
  Report Type: Spontaneous
  Country: US (occurrence: US)
  Receive Date: 20170420
  Receipt Date: 20170525
  Transmission Date: 20170830
  Serious: Yes (Other)
  Sender: FDA-Public Use
  Company Number: US-ASTRAZENECA-2017SE38913

PATIENT
  Age: 41 Year
  Sex: Female
  Weight: 68 kg

DRUGS (16)
  1. OMEPRAZOLE. [Suspect]
     Active Substance: OMEPRAZOLE
     Indication: GASTROOESOPHAGEAL REFLUX DISEASE
     Route: 048
     Dates: start: 2013, end: 201612
  2. NEXIUM 24HR [Suspect]
     Active Substance: ESOMEPRAZOLE MAGNESIUM
     Indication: GASTROOESOPHAGEAL REFLUX DISEASE
     Dosage: UNKNOWN
     Route: 048
     Dates: start: 201612, end: 20170406
  3. CYMBALTA [Concomitant]
     Active Substance: DULOXETINE HYDROCHLORIDE
     Indication: FIBROMYALGIA
     Route: 048
     Dates: start: 2004
  4. CYMBALTA [Concomitant]
     Active Substance: DULOXETINE HYDROCHLORIDE
     Indication: DEPRESSION
     Route: 048
     Dates: start: 2004
  5. KLOR-CON [Concomitant]
     Active Substance: POTASSIUM CHLORIDE
     Indication: BLOOD POTASSIUM DECREASED
     Route: 048
     Dates: start: 2012
  6. DIAZEPAM. [Concomitant]
     Active Substance: DIAZEPAM
     Indication: ANXIETY
     Dosage: 10.0MG AS REQUIRED
     Route: 048
     Dates: start: 2001
  7. NOVOLOG [Concomitant]
     Active Substance: INSULIN ASPART
     Indication: DIABETES MELLITUS
     Route: 058
  8. HYDROCODONE [Concomitant]
     Active Substance: HYDROCODONE
     Indication: PAIN
     Dosage: 10-325MG, AS REQUIRED
     Route: 048
     Dates: start: 1999
  9. NEXIUM [Suspect]
     Active Substance: ESOMEPRAZOLE MAGNESIUM
     Indication: GASTROOESOPHAGEAL REFLUX DISEASE
     Dosage: UNKNOWN DOSE, DAILY
     Route: 048
     Dates: start: 2004, end: 2013
  10. OMEPRAZOLE. [Suspect]
     Active Substance: OMEPRAZOLE
     Indication: GASTROOESOPHAGEAL REFLUX DISEASE
     Route: 048
     Dates: start: 2013, end: 201612
  11. NEXIUM [Suspect]
     Active Substance: ESOMEPRAZOLE MAGNESIUM
     Indication: GASTROOESOPHAGEAL REFLUX DISEASE
     Dosage: UNKNOWN DOSE, DAILY
     Route: 048
     Dates: start: 2004, end: 2013
  12. NEXIUM 24HR [Suspect]
     Active Substance: ESOMEPRAZOLE MAGNESIUM
     Indication: GASTROOESOPHAGEAL REFLUX DISEASE
     Dosage: UNKNOWN
     Route: 048
     Dates: start: 201612, end: 20170406
  13. ASPIRIN. [Concomitant]
     Active Substance: ASPIRIN
     Route: 048
     Dates: start: 2004
  14. LANTUS SOLSTAR INSULIN [Concomitant]
     Indication: DIABETES MELLITUS
     Dosage: 20, AT NIGHT
     Route: 058
     Dates: start: 2012
  15. CLARITIN [Concomitant]
     Active Substance: LORATADINE
     Indication: SEASONAL ALLERGY
     Route: 048
     Dates: start: 2008
  16. NEURONTIN [Concomitant]
     Active Substance: GABAPENTIN
     Indication: NEURALGIA
     Route: 048

REACTIONS (7)
  - Loss of consciousness [Recovered/Resolved]
  - Blood potassium decreased [Recovered/Resolved]
  - Blood glucose decreased [Recovered/Resolved]
  - Chest discomfort [Recovered/Resolved]
  - Intentional product misuse [Unknown]
  - Chest pain [Recovered/Resolved]
  - Carpal tunnel syndrome [Not Recovered/Not Resolved]

NARRATIVE: CASE EVENT DATE: 2006
